FAERS Safety Report 6543203-2 (Version None)
Quarter: 2010Q1

REPORT INFORMATION
  Report Type: 
  Country: None (occurrence: None)
  Receive Date: 20100106
  Receipt Date: 20091006
  Transmission Date: 20100710
  Serious: No
  Sender: FDA-Public Use
  Company Number: 2009-00651

PATIENT
  Sex: Male

DRUGS (1)
  1. COLD REMEDY NASAL GEL [Suspect]

REACTIONS (2)
  - AGEUSIA [None]
  - ANOSMIA [None]
